FAERS Safety Report 11885197 (Version 1)
Quarter: 2015Q4

REPORT INFORMATION
  Report Type: Spontaneous
  Country: None (occurrence: None)
  Receive Date: 20151231
  Receipt Date: 20151231
  Transmission Date: 20160305
  Serious: Yes (Disabling)
  Sender: FDA-Public Use
  Company Number: None

PATIENT
  Age: 31 Year
  Sex: Male
  Weight: 65.77 kg

DRUGS (4)
  1. BOSWELLIA [Concomitant]
  2. HUMIRA [Suspect]
     Active Substance: ADALIMUMAB
     Indication: CROHN^S DISEASE
     Dosage: 1 PEN EVERY OTHER WEEK GIVEN INTO/UNDER THE SKIN
     Route: 058
  3. TURMERIC [Concomitant]
     Active Substance: TURMERIC
  4. VITAMIN D [Concomitant]
     Active Substance: CHOLECALCIFEROL

REACTIONS (2)
  - Psoriasis [None]
  - Quality of life decreased [None]

NARRATIVE: CASE EVENT DATE: 20150615
